FAERS Safety Report 16438713 (Version 2)
Quarter: 2019Q3

REPORT INFORMATION
  Report Type: Spontaneous
  Country: ES (occurrence: ES)
  Receive Date: 20190617
  Receipt Date: 20190726
  Transmission Date: 20191004
  Serious: Yes (Other)
  Sender: FDA-Public Use
  Company Number: ES-ZYDUS-037631

PATIENT
  Sex: Female

DRUGS (1)
  1. DONEPEZIL/DONEPEZIL HYDROCHLORIDE [Suspect]
     Active Substance: DONEPEZIL HYDROCHLORIDE
     Indication: PRODUCT USED FOR UNKNOWN INDICATION
     Route: 048
     Dates: start: 201904

REACTIONS (1)
  - Aggression [Unknown]

NARRATIVE: CASE EVENT DATE: 201904
